FAERS Safety Report 4595877-3 (Version None)
Quarter: 2005Q1

REPORT INFORMATION
  Report Type: 
  Country: None (occurrence: None)
  Receive Date: 20050224
  Receipt Date: 20050224
  Transmission Date: 20050727
  Serious: Yes (Hospitalization)
  Sender: FDA-Public Use
  Company Number: None

PATIENT
  Age: 56 Year
  Sex: Female
  Weight: 67.1324 kg

DRUGS (3)
  1. BEXAROTENE [Suspect]
     Indication: NON-SMALL CELL LUNG CANCER
     Dosage: 300MG  DAILY  ORAL
     Route: 048
     Dates: start: 20050112, end: 20050221
  2. LIPITOR [Concomitant]
  3. SYNTHROID [Concomitant]

REACTIONS (5)
  - DYSPNOEA [None]
  - MALIGNANT NEOPLASM PROGRESSION [None]
  - PERICARDIAL EFFUSION [None]
  - PLEURAL EFFUSION [None]
  - PORTAL VEIN THROMBOSIS [None]
